FAERS Safety Report 4461748-6 (Version None)
Quarter: 2004Q3

REPORT INFORMATION
  Report Type: 
  Country: None (occurrence: None)
  Receive Date: 20040929
  Receipt Date: 20040921
  Transmission Date: 20050211
  Serious: Yes (Death)
  Sender: FDA-Public Use
  Company Number: JP-JNJFOC-20031204156

PATIENT
  Sex: Male

DRUGS (22)
  1. DUROTEP [Suspect]
     Route: 062
     Dates: start: 20031007, end: 20031110
  2. DUROTEP [Suspect]
     Indication: CANCER PAIN
     Route: 062
     Dates: start: 20031007, end: 20031110
  3. LOXOPROFEN SODIUM [Concomitant]
     Route: 049
  4. EPERISONE HYDROCHLORIDE [Concomitant]
     Route: 049
  5. CARBAMAZEPINE [Concomitant]
     Route: 049
  6. MORPHINE HYDROCHLORIDE [Concomitant]
     Route: 049
  7. DICLOFENAC SODIUM [Concomitant]
     Route: 054
  8. MAGNESIUM OXIDE [Concomitant]
     Route: 049
  9. BIFIDOBACTERIUM [Concomitant]
     Route: 049
  10. PREDNISOLONE [Concomitant]
     Route: 049
  11. UFT [Concomitant]
     Route: 049
  12. ETIZOLAM [Concomitant]
     Route: 049
  13. LANSOPRAZOLE [Concomitant]
     Route: 049
  14. FLUNITRAZEPAM [Concomitant]
     Route: 049
  15. CEFTRIAXONE SODIUM [Concomitant]
     Route: 041
  16. METOCLOPRAMIDE [Concomitant]
     Route: 041
  17. BETAMETHASONE SODIUM PHOSPHATE [Concomitant]
     Route: 041
  18. RANITIDINE HYDROCHLORIDE [Concomitant]
     Route: 041
  19. FOSMICIN S [Concomitant]
     Route: 041
  20. ARBEKACIN SULFATE [Concomitant]
     Route: 041
  21. TIENAM [Concomitant]
     Route: 041
  22. TIENAM [Concomitant]
     Route: 041

REACTIONS (7)
  - ALANINE AMINOTRANSFERASE INCREASED [None]
  - BLOOD ALKALINE PHOSPHATASE INCREASED [None]
  - BLOOD UREA INCREASED [None]
  - LUNG NEOPLASM MALIGNANT [None]
  - MALIGNANT NEOPLASM PROGRESSION [None]
  - METASTASES TO BONE [None]
  - PNEUMONIA [None]
